FAERS Safety Report 7630034-5 (Version None)
Quarter: 2011Q3

REPORT INFORMATION
  Report Type: 
  Country: None (occurrence: None)
  Receive Date: 20110722
  Receipt Date: 20110719
  Transmission Date: 20111222
  Serious: Yes (Other)
  Sender: FDA-Public Use
  Company Number: DE-PFIZER INC-2011163085

PATIENT
  Age: 48 Year
  Sex: Male
  Weight: 90 kg

DRUGS (6)
  1. RAMIPRIL [Concomitant]
     Indication: MITRAL VALVE REPLACEMENT
     Dosage: 2.5 MG, UNK
     Dates: start: 20100726
  2. MARCUMAR [Concomitant]
     Dosage: UNK
  3. BISOPROLOL [Concomitant]
     Indication: CARDIAC FAILURE
     Dosage: 5 MG, UNK
     Dates: start: 20100726
  4. SPIRO COMP. [Concomitant]
     Dosage: UNK
     Dates: start: 20100726
  5. EZETIMIBE [Suspect]
     Indication: HYPERLIPIDAEMIA
     Dosage: 10 MG, UNK
     Dates: start: 20100729, end: 20100824
  6. ATORVASTATIN CALCIUM [Suspect]
     Indication: HYPERLIPIDAEMIA
     Dosage: 40-80MG
     Dates: start: 20100726, end: 20100824

REACTIONS (2)
  - SYSTEMIC LUPUS ERYTHEMATOSUS [None]
  - POLYARTHRITIS [None]
